FAERS Safety Report 9518394 (Version 2)
Quarter: 2013Q3

REPORT INFORMATION
  Report Type: Not Available
  Country: US (occurrence: US)
  Receive Date: 20130912
  Receipt Date: 20130912
  Transmission Date: 20140515
  Serious: Yes (Hospitalization)
  Sender: FDA-Public Use
  Company Number: US-LUNDBECK-DKLU1087890

PATIENT
  Age: 15 Year
  Sex: Male

DRUGS (10)
  1. ONFI [Suspect]
     Indication: EPILEPSY
     Route: 048
     Dates: start: 20121002
  2. ONFI [Suspect]
     Route: 048
  3. ONFI [Suspect]
     Route: 048
  4. ONFI [Suspect]
     Route: 048
     Dates: end: 20121025
  5. KEPPRA [Concomitant]
     Indication: EPILEPSY
     Route: 048
  6. KEPPRA [Concomitant]
     Route: 048
  7. KEPPRA [Concomitant]
     Route: 048
  8. DEPAKOTE [Concomitant]
     Indication: EPILEPSY
     Route: 048
  9. RISPERDAL [Concomitant]
     Indication: PRODUCT USED FOR UNKNOWN INDICATION
  10. ALPHA-ADRENERGIC [Concomitant]
     Indication: PRODUCT USED FOR UNKNOWN INDICATION

REACTIONS (1)
  - Stevens-Johnson syndrome [Recovering/Resolving]
